FAERS Safety Report 8598850-3 (Version None)
Quarter: 2012Q3

REPORT INFORMATION
  Report Type: 
  Country: None (occurrence: None)
  Receive Date: 20120816
  Receipt Date: 20120810
  Transmission Date: 20120928
  Serious: Yes (Death, Life-Threatening, Hospitalization, Other)
  Sender: FDA-Public Use
  Company Number: FR-GLAXOSMITHKLINE-B0822700A

PATIENT
  Sex: Female

DRUGS (9)
  1. ISOPTIN [Suspect]
     Indication: HYPERTENSION
     Dosage: 120MG PER DAY
     Route: 048
     Dates: start: 20120712, end: 20120712
  2. DIGOXIN [Suspect]
     Indication: PRODUCT USED FOR UNKNOWN INDICATION
     Route: 042
     Dates: start: 20120708, end: 20120708
  3. MIANSERINE [Concomitant]
     Indication: DEPRESSION
     Route: 048
     Dates: end: 20120701
  4. RYTHMOL [Suspect]
     Indication: HYPERTENSION
     Dosage: 150MG PER DAY
     Route: 048
     Dates: start: 20120712, end: 20120712
  5. CORDARONE [Suspect]
     Indication: ARRHYTHMIA
     Dosage: 600MG PER DAY
     Route: 042
     Dates: start: 20120707, end: 20120712
  6. PLAVIX [Concomitant]
     Indication: TRANSIENT ISCHAEMIC ATTACK
     Dosage: 75MG PER DAY
     Route: 048
     Dates: end: 20120704
  7. LORAZEPAM [Concomitant]
     Indication: DEPRESSION
     Dosage: 500MG PER DAY
     Route: 048
     Dates: end: 20120701
  8. ZOCOR [Concomitant]
     Indication: DYSLIPIDAEMIA
     Dosage: 20MG PER DAY
     Route: 048
     Dates: end: 20120701
  9. ALDACTAZINE [Concomitant]
     Indication: HYPERTENSION
     Route: 048
     Dates: end: 20120701

REACTIONS (25)
  - HEPATIC FUNCTION ABNORMAL [None]
  - MENINGOCOCCAL INFECTION [None]
  - SHOCK [None]
  - SOMNOLENCE [None]
  - NEUROLOGICAL DECOMPENSATION [None]
  - STAPHYLOCOCCAL SEPSIS [None]
  - LUNG DISORDER [None]
  - RENAL IMPAIRMENT [None]
  - ACUTE CORONARY SYNDROME [None]
  - GENERAL PHYSICAL HEALTH DETERIORATION [None]
  - RENAL FAILURE ACUTE [None]
  - CARDIAC TAMPONADE [None]
  - DEATH [None]
  - PULMONARY FUNCTION TEST ABNORMAL [None]
  - ACUTE RESPIRATORY DISTRESS SYNDROME [None]
  - ELECTROCARDIOGRAM ST SEGMENT ELEVATION [None]
  - ARRHYTHMIA [None]
  - SEPTIC SHOCK [None]
  - ATRIAL FIBRILLATION [None]
  - HAEMODYNAMIC INSTABILITY [None]
  - BRADYCARDIA [None]
  - ENTEROCOCCAL SEPSIS [None]
  - CARDIAC ARREST [None]
  - SEDATION [None]
  - MEDICAL DEVICE COMPLICATION [None]
